FAERS Safety Report 7627097-X (Version None)
Quarter: 2011Q3

REPORT INFORMATION
  Report Type: 
  Country: None (occurrence: None)
  Receive Date: 20110714
  Receipt Date: 20110630
  Transmission Date: 20111222
  Serious: Yes (Life-Threatening, Hospitalization)
  Sender: FDA-Public Use
  Company Number: 1000022026

PATIENT
  Age: 85 Year
  Sex: Female

DRUGS (15)
  1. FLUOXETINE (FUROSEMIDE) (FUROSEMIDE) [Concomitant]
  2. LORATADINE (LORATIDINE) 9LORATADINE) [Concomitant]
  3. MORPHINE SULFATE [Concomitant]
  4. QUININE SULPHATE (QUININE SULFATE) (QUININE SULFATE) [Concomitant]
  5. DIGOXIN [Concomitant]
  6. LACTULOSE (LACTULOSE) (LACTULOSE) [Concomitant]
  7. MOVICOL (MACROGOL, POLYETHYLENE GLYCOL, POTASSIUM CHLORIDE, SODIUM BIC [Concomitant]
  8. DOCUSATE SODIUM (DOCUSATE SODIUM) 9DOCUSATE SODIUM) [Concomitant]
  9. RISEDRONATE (RISEDRONATE SODIUM) (RISEDRONATE SODIUM) [Concomitant]
  10. WARFARIN SODIUM [Concomitant]
  11. ADCAL-D3 (CALCIUM CARBONATE, VITAMIN D) (CALCIUM CARBONATE, VITAMIN D) [Concomitant]
  12. LANSOPRAZOLE [Concomitant]
  13. AMLODIPINE (AMLOIPINE) (AMLODIPINE) [Concomitant]
  14. MEMANTINE [Suspect]
     Indication: DEMENTIA ALZHEIMER'S TYPE
     Dosage: ORAL
     Route: 048
     Dates: start: 20110317, end: 20110411
  15. FUROSEMIDE [Concomitant]

REACTIONS (1)
  - RIGHT VENTRICULAR FAILURE [None]
